FAERS Safety Report 5830280-7 (Version None)
Quarter: 2008Q3

REPORT INFORMATION
  Report Type: 
  Country: None (occurrence: None)
  Receive Date: 20080801
  Receipt Date: 20080724
  Transmission Date: 20090109
  Serious: Yes (Hospitalization)
  Sender: FDA-Public Use
  Company Number: US-GENENTECH-264235

PATIENT
  Sex: Male
  Weight: 90.26 kg

DRUGS (18)
  1. BLINDED APOMAB (PRO95780) [Suspect]
     Indication: NON-SMALL CELL LUNG CANCER
     Dosage: 986 UNK, UNK
     Route: 042
     Dates: start: 20080521
  2. BLINDED BEVACIZUMAB [Suspect]
     Indication: NON-SMALL CELL LUNG CANCER
     Dosage: 986 UNK, UNK
     Route: 042
     Dates: start: 20080521
  3. CARBOPLATIN [Suspect]
     Indication: NON-SMALL CELL LUNG CANCER
     Dosage: 986 UNK, UNK
     Route: 042
     Dates: start: 20080521
  4. PACLITAXEL [Suspect]
     Indication: NON-SMALL CELL LUNG CANCER
     Dosage: 986 UNK, UNK
     Route: 042
     Dates: start: 20080521
  5. BLINDED PLACEBO [Suspect]
     Indication: NON-SMALL CELL LUNG CANCER
     Dosage: 986 UNK, UNK
     Route: 042
     Dates: start: 20080521
  6. BEVACIZUMAB [Suspect]
     Indication: NON-SMALL CELL LUNG CANCER
     Dosage: 1480 UNK, UNK
     Route: 042
     Dates: start: 20080521
  7. CARBOPLATIN [Suspect]
     Indication: NON-SMALL CELL LUNG CANCER
     Dosage: 588 UNK, UNK
     Route: 042
     Dates: start: 20080521
  8. PACLITAXEL [Suspect]
     Indication: NON-SMALL CELL LUNG CANCER
     Dosage: 312 UNK, UNK
     Route: 042
     Dates: start: 20080521
  9. SIMVASTATIN [Concomitant]
     Indication: DRUG USE FOR UNKNOWN INDICATION
     Dosage: 80 MG, QD
  10. COREG [Concomitant]
     Indication: DRUG USE FOR UNKNOWN INDICATION
     Dosage: 12.5 MG, BID
  11. PLAVIX [Concomitant]
     Indication: DRUG USE FOR UNKNOWN INDICATION
     Dosage: 75 MG, QD
  12. LISINOPRIL [Concomitant]
     Indication: DRUG USE FOR UNKNOWN INDICATION
     Dosage: 20 MG, QD
  13. XANAX [Concomitant]
     Indication: DRUG USE FOR UNKNOWN INDICATION
     Dosage: 0.5 UNK, QHS
  14. ASPIRIN [Concomitant]
     Indication: DRUG USE FOR UNKNOWN INDICATION
     Dosage: 81 MG, QD
  15. NITROGLYCERIN [Concomitant]
     Indication: DRUG USE FOR UNKNOWN INDICATION
     Dosage: 0.4 UNK, PRN
  16. M.V.I. [Concomitant]
     Indication: DRUG USE FOR UNKNOWN INDICATION
  17. ALBUTEROL [Concomitant]
     Indication: DRUG USE FOR UNKNOWN INDICATION
  18. CARDIZEM [Concomitant]
     Indication: DRUG USE FOR UNKNOWN INDICATION

REACTIONS (1)
  - PULMONARY EMBOLISM [None]
